FAERS Safety Report 11523117 (Version 1)
Quarter: 2015Q3

REPORT INFORMATION
  Report Type: Spontaneous
  Country: US (occurrence: US)
  Receive Date: 20150918
  Receipt Date: 20150918
  Transmission Date: 20151125
  Serious: Yes (Other)
  Sender: FDA-Public Use
  Company Number: US-ROCHE-689123

PATIENT
  Age: 50 Year
  Sex: Female

DRUGS (4)
  1. PEGASYS [Suspect]
     Active Substance: PEGINTERFERON ALFA-2A
     Indication: HEPATITIS C
     Dosage: PRE-FILLED SYRINGES; THERAPY COMPLETED
     Route: 065
     Dates: start: 20100129, end: 20100709
  2. TRIAMTERENE. [Concomitant]
     Active Substance: TRIAMTERENE
     Indication: HYPERTENSION
     Route: 065
  3. RIBAVIRIN. [Suspect]
     Active Substance: RIBAVIRIN
     Indication: HEPATITIS C
     Dosage: DIVIDED DOSES; THERAPY COMPLETED
     Route: 048
     Dates: start: 20100129, end: 20100709
  4. HYDROCHLOROTHIAZIDE. [Concomitant]
     Active Substance: HYDROCHLOROTHIAZIDE
     Indication: HYPERTENSION
     Route: 065

REACTIONS (24)
  - Body temperature increased [Not Recovered/Not Resolved]
  - Headache [Not Recovered/Not Resolved]
  - Dyspnoea exertional [Unknown]
  - Depression [Unknown]
  - Rash [Recovering/Resolving]
  - Pain [Not Recovered/Not Resolved]
  - Asthenia [Unknown]
  - Fluid retention [Unknown]
  - Middle insomnia [Unknown]
  - Fatigue [Unknown]
  - Epistaxis [Unknown]
  - Alopecia [Unknown]
  - Amenorrhoea [Unknown]
  - Joint swelling [Unknown]
  - Palpitations [Unknown]
  - Weight increased [Unknown]
  - Dizziness [Not Recovered/Not Resolved]
  - Fatigue [Not Recovered/Not Resolved]
  - Contusion [Not Recovered/Not Resolved]
  - Irritability [Not Recovered/Not Resolved]
  - Injection site pruritus [Unknown]
  - Pain [Unknown]
  - Decreased appetite [Unknown]
  - Mood swings [Not Recovered/Not Resolved]

NARRATIVE: CASE EVENT DATE: 201001
